FAERS Safety Report 23984660 (Version 1)
Quarter: 2024Q2

REPORT INFORMATION
  Report Type: Spontaneous
  Country: US (occurrence: US)
  Receive Date: 20240618
  Receipt Date: 20240618
  Transmission Date: 20240716
  Serious: No
  Sender: FDA-Public Use
  Company Number: US-GLK-002333

PATIENT
  Age: 60 Year
  Sex: Female

DRUGS (5)
  1. PHOTREXA [Suspect]
     Active Substance: RIBOFLAVIN 5^-PHOSPHATE SODIUM
     Indication: Keratoconus
     Dosage: 30 MINUTES IN LEFT EYE (OS)
     Route: 047
     Dates: start: 20240329, end: 20240329
  2. PHOTREXA VISCOUS [Suspect]
     Active Substance: RIBOFLAVIN 5^-PHOSPHATE SODIUM
     Indication: Keratoconus
     Dosage: 2 MINUTES IN LEFT EYE (OS)
     Route: 047
     Dates: start: 20240329, end: 20240329
  3. moxifloxacin-soaked bandage contact lenses [Concomitant]
     Indication: Product used for unknown indication
  4. prednisolone acetate (pf) 1% eye drops [Concomitant]
     Indication: Product used for unknown indication
     Route: 047
     Dates: start: 20240329
  5. KETOTIFEN [Concomitant]
     Active Substance: KETOTIFEN
     Indication: Multiple allergies
     Dosage: UNKNOWN

REACTIONS (3)
  - Anxiety [Unknown]
  - Corneal opacity [Not Recovered/Not Resolved]
  - Visual impairment [Not Recovered/Not Resolved]

NARRATIVE: CASE EVENT DATE: 20240101
